FAERS Safety Report 9426416 (Version 3)
Quarter: 2015Q3

REPORT INFORMATION
  Report Type: Spontaneous
  Country: US (occurrence: US)
  Receive Date: 20130730
  Receipt Date: 20150903
  Transmission Date: 20151125
  Serious: Yes (Hospitalization)
  Sender: FDA-Public Use
  Company Number: US-BAYER-2013-091766

PATIENT
  Age: 24 Year
  Sex: Female
  Weight: 103.86 kg

DRUGS (8)
  1. YASMIN [Suspect]
     Active Substance: DROSPIRENONE\ETHINYL ESTRADIOL
  2. BEYAZ [Suspect]
     Active Substance: DROSPIRENONE\ETHINYL ESTRADIOL\LEVOMEFOLATE CALCIUM
  3. CLARAVIS [Concomitant]
     Active Substance: ISOTRETINOIN
     Dosage: 10 MG, UNK
     Dates: start: 20120926
  4. ALPRAZOLAM. [Concomitant]
     Active Substance: ALPRAZOLAM
     Dosage: 0.5 MG, UNK
     Dates: start: 20110511, end: 20120523
  5. ACCUTANE [Concomitant]
     Active Substance: ISOTRETINOIN
     Indication: ACNE
     Dosage: 10 MG, DAILY
  6. NADOLOL. [Concomitant]
     Active Substance: NADOLOL
     Indication: ACNE
     Dosage: 20 MG, UNK
     Dates: start: 20121008
  7. OMEPRAZOLE. [Concomitant]
     Active Substance: OMEPRAZOLE
     Indication: GASTROOESOPHAGEAL REFLUX DISEASE
     Dosage: 40 MG, DAILY
  8. XANAX [Concomitant]
     Active Substance: ALPRAZOLAM
     Indication: ANXIETY
     Dosage: 0.25 MG, PRN

REACTIONS (3)
  - Deep vein thrombosis [None]
  - Emotional distress [None]
  - Injury [None]

NARRATIVE: CASE EVENT DATE: 20121015
